FAERS Safety Report 4802561-7 (Version None)
Quarter: 2005Q4

REPORT INFORMATION
  Report Type: 
  Country: None (occurrence: None)
  Receive Date: 20051014
  Receipt Date: 20050119
  Transmission Date: 20060501
  Serious: Yes (Other)
  Sender: FDA-Public Use
  Company Number: 2005015743

PATIENT
  Sex: Male
  Weight: 91.173 kg

DRUGS (6)
  1. NEURONTIN [Suspect]
     Indication: ANXIETY
     Dosage: 300 MG (300 MG, 1 IN 1 D)
     Dates: start: 20040801, end: 20041001
  2. NEURONTIN [Suspect]
     Indication: INSOMNIA
     Dosage: 300 MG (300 MG, 1 IN 1 D)
     Dates: start: 20040801, end: 20041001
  3. NEURONTIN [Suspect]
     Indication: MOOD SWINGS
     Dosage: 300 MG (300 MG, 1 IN 1 D)
     Dates: start: 20040801, end: 20041001
  4. CARVEDILOL [Concomitant]
  5. ENALAPRIL MALEATE [Concomitant]
  6. WARFARIN SODIUM [Concomitant]

REACTIONS (5)
  - AMNESIA [None]
  - INSOMNIA [None]
  - PSYCHOTIC DISORDER [None]
  - WEIGHT DECREASED [None]
  - WEIGHT INCREASED [None]
